FAERS Safety Report 12482686 (Version 2)
Quarter: 2016Q3

REPORT INFORMATION
  Report Type: Spontaneous
  Country: FR (occurrence: FR)
  Receive Date: 20160620
  Receipt Date: 20160701
  Transmission Date: 20161109
  Serious: Yes (Hospitalization, Other)
  Sender: FDA-Public Use
  Company Number: FR-SA-2016SA110626

PATIENT
  Age: 61 Year
  Sex: Male

DRUGS (6)
  1. ZOLPIDEM [Suspect]
     Active Substance: ZOLPIDEM\ZOLPIDEM TARTRATE
     Route: 065
     Dates: start: 20160507, end: 20160508
  2. DAFALGAN CODEINE [Suspect]
     Active Substance: ACETAMINOPHEN\CODEINE PHOSPHATE
     Route: 048
     Dates: start: 20160507, end: 20160508
  3. ATARAX [Suspect]
     Active Substance: HYDROXYZINE\HYDROXYZINE HYDROCHLORIDE
     Route: 048
     Dates: start: 20160507, end: 20160508
  4. COLCHIMAX [Suspect]
     Active Substance: COLCHICINE\DICYCLOMINE HYDROCHLORIDE
     Dosage: TOOK IN TWO DAYS
     Route: 048
     Dates: start: 20160507, end: 20160508
  5. HAVLANE [Suspect]
     Active Substance: LOPRAZOLAM
     Route: 048
     Dates: start: 20160507, end: 20160508
  6. STILNOX [Suspect]
     Active Substance: ZOLPIDEM TARTRATE
     Route: 048
     Dates: start: 20160507, end: 20160508

REACTIONS (8)
  - Sinus tachycardia [Unknown]
  - Epilepsy [Recovered/Resolved]
  - Diarrhoea [Unknown]
  - Hypertension [Unknown]
  - Pancreatitis acute [Recovered/Resolved]
  - Acute prerenal failure [Recovering/Resolving]
  - Vomiting [Unknown]
  - Partial seizures [Recovered/Resolved]

NARRATIVE: CASE EVENT DATE: 20160508
